FAERS Safety Report 13038041 (Version 1)
Quarter: 2016Q4

REPORT INFORMATION
  Report Type: Spontaneous
  Country: US (occurrence: US)
  Receive Date: 20161212
  Receipt Date: 20161212
  Transmission Date: 20170207
  Serious: Yes (Hospitalization)
  Sender: FDA-Public Use
  Company Number: None

PATIENT
  Age: 34 Year
  Sex: Female
  Weight: 130.5 kg

DRUGS (1)
  1. CIPROFLOXACIN/DEXTROSE [Suspect]
     Active Substance: CIPROFLOXACIN HYDROCHLORIDE\DEXTROSE
     Indication: SURGERY
     Route: 042
     Dates: start: 20160916, end: 20160916

REACTIONS (4)
  - Urticaria [None]
  - Wheezing [None]
  - Cough [None]
  - Pruritus [None]

NARRATIVE: CASE EVENT DATE: 20160916
